FAERS Safety Report 5280450-4 (Version None)
Quarter: 2007Q1

REPORT INFORMATION
  Report Type: 
  Country: None (occurrence: None)
  Receive Date: 20070329
  Receipt Date: 20070319
  Transmission Date: 20070707
  Serious: Yes (Life-Threatening)
  Sender: FDA-Public Use
  Company Number: TR-AVENTIS-200712468GDDC

PATIENT
  Age: 10 Year

DRUGS (4)
  1. CEFOTAXIME [Suspect]
     Indication: PNEUMONIA
     Dosage: DOSE: UNK
  2. CEFOTAXIME [Suspect]
     Indication: PLEURAL EFFUSION
     Dosage: DOSE: UNK
  3. VANCOMYCIN [Suspect]
     Indication: PNEUMONIA
     Dosage: DOSE: UNK
  4. VANCOMYCIN [Suspect]
     Indication: PLEURAL EFFUSION
     Dosage: DOSE: UNK

REACTIONS (3)
  - ALANINE AMINOTRANSFERASE INCREASED [None]
  - ASPARTATE AMINOTRANSFERASE INCREASED [None]
  - DRUG RASH WITH EOSINOPHILIA AND SYSTEMIC SYMPTOMS [None]
